FAERS Safety Report 9627949 (Version 2)
Quarter: 2013Q4

REPORT INFORMATION
  Report Type: Spontaneous
  Country: DE (occurrence: DE)
  Receive Date: 20131016
  Receipt Date: 20131114
  Transmission Date: 20140711
  Serious: Yes (Death)
  Sender: FDA-Public Use
  Company Number: DE-BAXTER-2013BAX039524

PATIENT
  Sex: Male

DRUGS (2)
  1. EXTRANEAL [Suspect]
     Indication: NEPHROSCLEROSIS
     Route: 033
     Dates: end: 20130917
  2. PHYSIONEAL 40 GLUCOSE 1,36 % W/V 13,6 MG/ML PERITONEALDIALYSEL?SUNG [Suspect]
     Indication: NEPHROSCLEROSIS
     Route: 033
     Dates: end: 20130917

REACTIONS (2)
  - Cardiac failure [Fatal]
  - Ischaemic cardiomyopathy [Fatal]
